FAERS Safety Report 10516232 (Version 1)
Quarter: 2014Q4

REPORT INFORMATION
  Report Type: Spontaneous
  Country: US (occurrence: None)
  Receive Date: 20141003
  Receipt Date: 20141003
  Transmission Date: 20150528
  Serious: Yes (Hospitalization)
  Sender: FDA-Public Use
  Company Number: 2010624

PATIENT
  Age: 60 Year
  Sex: Male
  Weight: 119 kg

DRUGS (22)
  1. MORPHINE SULFATE. [Concomitant]
     Active Substance: MORPHINE SULFATE
  2. FINASTERIDE. [Concomitant]
     Active Substance: FINASTERIDE
  3. NIFEDIPINE. [Concomitant]
     Active Substance: NIFEDIPINE
  4. HEPARIN [Concomitant]
     Active Substance: HEPARIN SODIUM
  5. PANTOPRAZOLE [Concomitant]
     Active Substance: PANTOPRAZOLE SODIUM
  6. DOCUSATE [Concomitant]
     Active Substance: DOCUSATE
  7. ACETAMINOPHEN. [Concomitant]
     Active Substance: ACETAMINOPHEN
  8. EPOETIN [Concomitant]
     Active Substance: ERYTHROPOIETIN
  9. BISACODYL. [Concomitant]
     Active Substance: BISACODYL
  10. INVESTIGATIONAL DRUG [Suspect]
     Active Substance: INVESTIGATIONAL PRODUCT
     Indication: BACTERAEMIA
     Dosage: NOT OTHERWISE SPECIFIED
     Route: 042
     Dates: start: 20130927, end: 20131002
  11. AMLODIPINE [Concomitant]
     Active Substance: AMLODIPINE BESYLATE
  12. INSULIN ASPART [Concomitant]
     Active Substance: INSULIN ASPART
  13. FERROUS GLUCONATE [Concomitant]
     Active Substance: FERROUS GLUCONATE
  14. GUAIFENESIN. [Concomitant]
     Active Substance: GUAIFENESIN
  15. VANCOMYCIN HYDROCHLORIDE. [Suspect]
     Active Substance: VANCOMYCIN HYDROCHLORIDE
     Indication: BACTERAEMIA
     Dosage: NOT OTHERWISE SPECIFIED
     Route: 042
     Dates: start: 20131003, end: 20131008
  16. PROMETHAZINE [Concomitant]
     Active Substance: PROMETHAZINE\PROMETHAZINE HYDROCHLORIDE
  17. METRONIDAZOLE. [Concomitant]
     Active Substance: METRONIDAZOLE
  18. CHLORINATED SODA SOLUTION [Concomitant]
  19. TAMSULOSIN [Concomitant]
     Active Substance: TAMSULOSIN
  20. LORAZEPAM. [Concomitant]
     Active Substance: LORAZEPAM
  21. INSULIN GLARGINE [Concomitant]
     Active Substance: INSULIN GLARGINE
  22. SEVELAMER CARBONATE. [Concomitant]
     Active Substance: SEVELAMER CARBONATE

REACTIONS (1)
  - Acute kidney injury [None]

NARRATIVE: CASE EVENT DATE: 20131017
